FAERS Safety Report 8068441-1 (Version None)
Quarter: 2012Q1

REPORT INFORMATION
  Report Type: 
  Country: None (occurrence: None)
  Receive Date: 20120124
  Receipt Date: 20111024
  Transmission Date: 20120608
  Serious: No
  Sender: FDA-Public Use
  Company Number: US-AMGEN-USASP2011054832

PATIENT
  Age: 81 Year
  Sex: Female

DRUGS (2)
  1. CELEBREX [Concomitant]
     Dosage: UNK
  2. PROLIA [Suspect]
     Indication: OSTEOPOROSIS POSTMENOPAUSAL
     Dosage: UNK UNK, Q6MO
     Dates: start: 20110411

REACTIONS (1)
  - BACK PAIN [None]
